FAERS Safety Report 24443788 (Version 1)
Quarter: 2024Q4

REPORT INFORMATION
  Report Type: Spontaneous
  Country: US (occurrence: US)
  Receive Date: 20241016
  Receipt Date: 20241016
  Transmission Date: 20250115
  Serious: Yes (Other)
  Sender: PFIZER
  Company Number: US-PFIZER INC-202400274669

PATIENT
  Age: 72 Year
  Sex: Female
  Weight: 53.52 kg

DRUGS (3)
  1. IBRANCE [Suspect]
     Active Substance: PALBOCICLIB
     Indication: Neoplasm malignant
     Dosage: ONE TABLET A DAY, 3 WEEKS ON AND OFF 2 WEEKS
     Route: 048
     Dates: start: 202311, end: 2024
  2. IBRANCE [Suspect]
     Active Substance: PALBOCICLIB
     Dosage: UNK
     Dates: start: 20241002
  3. ELIQUIS [Concomitant]
     Active Substance: APIXABAN
     Indication: Haemorrhage
     Dosage: UNK

REACTIONS (3)
  - Tooth extraction [Unknown]
  - White blood cell count decreased [Unknown]
  - Body height decreased [Unknown]

NARRATIVE: CASE EVENT DATE: 20240101
